FAERS Safety Report 14943718 (Version 1)
Quarter: 2018Q2

REPORT INFORMATION
  Report Type: Spontaneous
  Country: IT (occurrence: IT)
  Receive Date: 20180528
  Receipt Date: 20180528
  Transmission Date: 20180711
  Serious: Yes (Other)
  Sender: FDA-Public Use
  Company Number: IT-ASTRAZENECA-2018SE67283

PATIENT
  Age: 40 Year
  Sex: Female

DRUGS (2)
  1. OLAPARIB. [Suspect]
     Active Substance: OLAPARIB
     Dosage: 800.0MG UNKNOWN
     Route: 048
     Dates: start: 20151105, end: 20160824
  2. OLAPARIB. [Suspect]
     Active Substance: OLAPARIB
     Dosage: 700.0MG UNKNOWN
     Route: 048

REACTIONS (7)
  - Brain scan abnormal [Unknown]
  - Brain oedema [Unknown]
  - Myalgia [Unknown]
  - Headache [Unknown]
  - Asthenia [Unknown]
  - Metastases to liver [Unknown]
  - Hypermetabolism [Unknown]

NARRATIVE: CASE EVENT DATE: 201701
